FAERS Safety Report 5730661-6 (Version None)
Quarter: 2008Q2

REPORT INFORMATION
  Report Type: 
  Country: None (occurrence: None)
  Receive Date: 20080507
  Receipt Date: 20080430
  Transmission Date: 20081010
  Serious: Yes (Other)
  Sender: FDA-Public Use
  Company Number: FR-ASTRAZENECA-2008CG00498

PATIENT
  Age: 920 Month
  Sex: Female
  Weight: 64 kg

DRUGS (8)
  1. ARIMIDEX [Suspect]
     Indication: BREAST CANCER FEMALE
     Route: 048
     Dates: start: 20070308, end: 20080201
  2. ARIMIDEX [Suspect]
     Route: 048
     Dates: start: 20080301
  3. LOGIMAX [Suspect]
     Indication: HYPERTENSION
     Dosage: 5 + 50 MG ONCE DAILY
     Route: 048
     Dates: start: 19990403
  4. NOLVADEX [Concomitant]
     Indication: BREAST CANCER FEMALE
     Route: 048
     Dates: start: 20080201, end: 20080301
  5. ACTONEL [Concomitant]
     Indication: OSTEOPOROSIS
     Route: 048
     Dates: start: 20070809
  6. IDEOS [Concomitant]
     Indication: CALCIUM DEFICIENCY
     Route: 048
     Dates: start: 20071228
  7. IDEOS [Concomitant]
     Indication: VITAMIN D DEFICIENCY
     Route: 048
     Dates: start: 20071228
  8. PRAVASTATIN [Concomitant]
     Indication: HYPERCHOLESTEROLAEMIA
     Route: 048
     Dates: start: 20001116

REACTIONS (2)
  - DEAFNESS UNILATERAL [None]
  - TINNITUS [None]
